FAERS Safety Report 10786091 (Version 2)
Quarter: 2015Q1

REPORT INFORMATION
  Report Type: Spontaneous
  Country: TW (occurrence: TW)
  Receive Date: 20150211
  Receipt Date: 20150216
  Transmission Date: 20150721
  Serious: Yes (Other)
  Sender: FDA-Public Use
  Company Number: TW-ABBVIE-15K-153-1345707-00

PATIENT
  Sex: Male
  Weight: 105 kg

DRUGS (1)
  1. HUMIRA [Suspect]
     Active Substance: ADALIMUMAB
     Indication: PSORIASIS
     Route: 065
     Dates: start: 20101105, end: 20111003

REACTIONS (1)
  - Nasopharyngeal cancer [Unknown]
